FAERS Safety Report 8075601-2 (Version None)
Quarter: 2012Q1

REPORT INFORMATION
  Report Type: 
  Country: None (occurrence: None)
  Receive Date: 20120127
  Receipt Date: 20120118
  Transmission Date: 20120608
  Serious: Yes (Other)
  Sender: FDA-Public Use
  Company Number: US-JNJFOC-20050702531

PATIENT
  Sex: Female
  Weight: 81.65 kg

DRUGS (2)
  1. REMICADE [Suspect]
     Indication: PSORIATIC ARTHROPATHY
     Route: 042
     Dates: start: 20050601
  2. REMICADE [Suspect]
     Route: 042
     Dates: start: 20050711

REACTIONS (5)
  - DIZZINESS [None]
  - BLOOD PRESSURE INCREASED [None]
  - PALPITATIONS [None]
  - INFUSION RELATED REACTION [None]
  - CARDIOVASCULAR DISORDER [None]
